FAERS Safety Report 8165252-3 (Version None)
Quarter: 2012Q1

REPORT INFORMATION
  Report Type: 
  Country: None (occurrence: None)
  Receive Date: 20120222
  Receipt Date: 20120222
  Transmission Date: 20120608
  Serious: No
  Sender: FDA-Public Use
  Company Number: None

PATIENT
  Age: 83 Year
  Sex: Female
  Weight: 53.0709 kg

DRUGS (1)
  1. CARVEDILOL [Suspect]
     Indication: DRUG THERAPY CHANGED
     Dosage: 25 MG 2X A DAY
     Dates: start: 20111225, end: 20120202

REACTIONS (14)
  - DIARRHOEA [None]
  - FATIGUE [None]
  - EPISTAXIS [None]
  - DYSPNOEA [None]
  - URINE ANALYSIS ABNORMAL [None]
  - CONTUSION [None]
  - DISORIENTATION [None]
  - DRY EYE [None]
  - LIVER DISORDER [None]
  - HYPOTENSION [None]
  - DIZZINESS [None]
  - ASTHENIA [None]
  - VISUAL IMPAIRMENT [None]
  - THIRST [None]
